FAERS Safety Report 10595759 (Version 2)
Quarter: 2015Q1

REPORT INFORMATION
  Report Type: Spontaneous
  Country: US (occurrence: US)
  Receive Date: 20141120
  Receipt Date: 20150217
  Transmission Date: 20150720
  Serious: No
  Sender: FDA-Public Use
  Company Number: US-AMARIN PHARMA, INC.-2014AMR000061

PATIENT
  Age: 84 Year
  Sex: Female
  Weight: 83.99 kg

DRUGS (2)
  1. VASCEPA [Suspect]
     Active Substance: ETHYL ICOSAPENTATE
     Dates: start: 20140902
  2. VASCEPA [Suspect]
     Active Substance: ETHYL ICOSAPENTATE
     Indication: HYPERTRIGLYCERIDAEMIA
     Dates: start: 20140829, end: 20140830

REACTIONS (3)
  - Hallucination [Recovering/Resolving]
  - Anxiety [Recovering/Resolving]
  - Arthralgia [Not Recovered/Not Resolved]

NARRATIVE: CASE EVENT DATE: 20140830
